FAERS Safety Report 17869713 (Version 1)
Quarter: 2020Q2

REPORT INFORMATION
  Report Type: Spontaneous
  Country: US (occurrence: US)
  Receive Date: 20200608
  Receipt Date: 20200608
  Transmission Date: 20200714
  Serious: Yes (Other)
  Sender: FDA-Public Use
  Company Number: US-SA-2020SA144692

PATIENT

DRUGS (12)
  1. COREG [Concomitant]
     Active Substance: CARVEDILOL
  2. CYMBALTA [Concomitant]
     Active Substance: DULOXETINE HYDROCHLORIDE
  3. ACYCLOVIR [ACICLOVIR] [Concomitant]
     Active Substance: ACYCLOVIR
  4. PLAVIX [Concomitant]
     Active Substance: CLOPIDOGREL BISULFATE
  5. LIPITOR [Suspect]
     Active Substance: ATORVASTATIN CALCIUM
     Dosage: 80 MG
  6. COZAAR [Concomitant]
     Active Substance: LOSARTAN POTASSIUM
  7. PRALUENT [Suspect]
     Active Substance: ALIROCUMAB
     Indication: TYPE IIA HYPERLIPIDAEMIA
     Dosage: 75 MG, QOW
     Route: 058
     Dates: start: 20200506
  8. ELIQUIS [Concomitant]
     Active Substance: APIXABAN
  9. LASIX [Concomitant]
     Active Substance: FUROSEMIDE
  10. LYRICA [Concomitant]
     Active Substance: PREGABALIN
  11. LIPITOR [Suspect]
     Active Substance: ATORVASTATIN CALCIUM
     Dosage: 40 MG
  12. XANAX [Concomitant]
     Active Substance: ALPRAZOLAM

REACTIONS (3)
  - Muscular weakness [Unknown]
  - Pain [Not Recovered/Not Resolved]
  - Cerebrovascular accident [Unknown]
